FAERS Safety Report 6084256-8 (Version None)
Quarter: 2009Q1

REPORT INFORMATION
  Report Type: 
  Country: None (occurrence: None)
  Receive Date: 20090219
  Receipt Date: 20090211
  Transmission Date: 20090719
  Serious: Yes (Other)
  Sender: FDA-Public Use
  Company Number: PHHY2009DE00735

PATIENT
  Sex: Female

DRUGS (4)
  1. FEMARA [Suspect]
     Indication: BREAST CANCER
     Dosage: 1 DAILY
     Route: 048
     Dates: start: 20020101
  2. ALENDRONIC ACID [Suspect]
     Indication: OSTEOMALACIA
     Dosage: 1XWEEKLY
     Route: 048
     Dates: start: 20081101, end: 20081201
  3. FOSAMAX [Concomitant]
     Indication: OSTEOMALACIA
     Dosage: UNK
     Dates: end: 20070101
  4. CALCIUM [Concomitant]
     Indication: OSTEOMALACIA
     Dosage: UNK
     Route: 048

REACTIONS (3)
  - PAIN [None]
  - RASH MACULO-PAPULAR [None]
  - STEVENS-JOHNSON SYNDROME [None]
